FAERS Safety Report 19468677 (Version 1)
Quarter: 2021Q2

REPORT INFORMATION
  Report Type: Spontaneous
  Country: JP (occurrence: JP)
  Receive Date: 20210628
  Receipt Date: 20210628
  Transmission Date: 20210717
  Serious: Yes (Other)
  Sender: FDA-Public Use
  Company Number: JP-SUNOVION-2021SUN002428

PATIENT
  Age: 51 Year
  Sex: Male
  Weight: 56 kg

DRUGS (19)
  1. LIORESAL [Concomitant]
     Active Substance: BACLOFEN
     Route: 065
     Dates: start: 20201210
  2. BLINCYTO [Suspect]
     Active Substance: BLINATUMOMAB
     Route: 042
     Dates: start: 20210113, end: 20210210
  3. BLINCYTO [Suspect]
     Active Substance: BLINATUMOMAB
     Route: 041
     Dates: start: 20210224
  4. ZOLPIDEM TARTRATE. [Suspect]
     Active Substance: ZOLPIDEM TARTRATE
     Indication: INSOMNIA
     Route: 065
  5. DAIPHEN [Concomitant]
     Active Substance: SULFAMETHOXAZOLE\TRIMETHOPRIM
     Route: 065
     Dates: start: 202011
  6. OLOPATADINE HYDROCHLORIDE. [Concomitant]
     Active Substance: OLOPATADINE HYDROCHLORIDE
     Route: 065
  7. FOIPAN [Concomitant]
     Active Substance: CAMOSTAT MESYLATE
     Route: 065
     Dates: start: 2017
  8. MAGMITT [Concomitant]
     Active Substance: MAGNESIUM OXIDE
     Route: 065
  9. E KEPPRA [Concomitant]
     Active Substance: LEVETIRACETAM
     Route: 065
     Dates: start: 20201209
  10. BLINCYTO [Suspect]
     Active Substance: BLINATUMOMAB
     Indication: B PRECURSOR TYPE ACUTE LEUKAEMIA
     Route: 041
     Dates: start: 20201209, end: 20201216
  11. BLINCYTO [Suspect]
     Active Substance: BLINATUMOMAB
     Route: 042
     Dates: start: 20201216, end: 20201230
  12. BLINCYTO [Suspect]
     Active Substance: BLINATUMOMAB
     Route: 042
     Dates: start: 20210413, end: 20210510
  13. BLINCYTO [Suspect]
     Active Substance: BLINATUMOMAB
     Route: 042
     Dates: start: 20210302, end: 20210330
  14. DEXAMETHASONE. [Concomitant]
     Active Substance: DEXAMETHASONE
     Route: 065
  15. ACICLOVIR [Concomitant]
     Active Substance: ACYCLOVIR
     Route: 065
     Dates: start: 2017
  16. DERMOSOL?G [Concomitant]
     Route: 065
     Dates: start: 202011
  17. LUNESTA [Suspect]
     Active Substance: ESZOPICLONE
     Indication: INSOMNIA
     Dosage: 2 MG, QD
     Route: 048
  18. LEVETIRACETAM. [Concomitant]
     Active Substance: LEVETIRACETAM
     Route: 065
     Dates: start: 20201209
  19. URSODEOXYCHOLIC ACID [Concomitant]
     Active Substance: URSODIOL
     Route: 065
     Dates: start: 202011

REACTIONS (8)
  - Cytomegalovirus test positive [Recovered/Resolved]
  - Platelet count decreased [Not Recovered/Not Resolved]
  - Vascular device occlusion [Recovering/Resolving]
  - Delirium [Recovered/Resolved]
  - Neutropenia [Recovered/Resolved]
  - Jugular vein thrombosis [Not Recovered/Not Resolved]
  - Cytokine release syndrome [Recovered/Resolved]
  - Immunoglobulins decreased [Recovered/Resolved]

NARRATIVE: CASE EVENT DATE: 20201209
